FAERS Safety Report 9294567 (Version 1)
Quarter: 2013Q1

REPORT INFORMATION
  Report Type: Spontaneous
  Country: US (occurrence: None)
  Receive Date: 20121227
  Receipt Date: 20121227
  Transmission Date: 20140127
  Serious: No
  Sender: FDA-Public Use
  Company Number: PHEH2012US022881

PATIENT
  Age: 77 Year
  Sex: Female

DRUGS (4)
  1. AFINITOR [Suspect]
     Indication: BREAST CANCER
     Route: 048
  2. NORVASC (AMLODIPINE BESILATE) [Suspect]
  3. SYNTHROID (LEVOTHYROXINE SODIUM) [Suspect]
  4. CAPTOPRIL AND HYDROCHLOROTHIAZIDE [Suspect]

REACTIONS (4)
  - Carbohydrate antigen 27.29 increased [None]
  - Abdominal pain upper [None]
  - Nausea [None]
  - Headache [None]
